FAERS Safety Report 5963407-7 (Version None)
Quarter: 2008Q4

REPORT INFORMATION
  Report Type: 
  Country: None (occurrence: None)
  Receive Date: 20081124
  Receipt Date: 20081117
  Transmission Date: 20090506
  Serious: Yes (Other)
  Sender: FDA-Public Use
  Company Number: US-ASTRAZENECA-2008UW25741

PATIENT
  Age: 71 Year
  Sex: Female
  Weight: 78 kg

DRUGS (5)
  1. ARIMIDEX [Suspect]
     Route: 048
     Dates: start: 20071101
  2. ACTONEL [Concomitant]
  3. HYPOTHYROID MED [Concomitant]
  4. ZOCOR [Concomitant]
     Dosage: 40 MG
  5. AMITRIPTYLINE HCL [Concomitant]

REACTIONS (2)
  - INTRAOCULAR PRESSURE INCREASED [None]
  - WEIGHT INCREASED [None]
